FAERS Safety Report 6407964-5 (Version None)
Quarter: 2009Q4

REPORT INFORMATION
  Report Type: 
  Country: None (occurrence: None)
  Receive Date: 20091016
  Receipt Date: 20091013
  Transmission Date: 20100525
  Serious: Yes (Other)
  Sender: FDA-Public Use
  Company Number: TPA2009A03153

PATIENT
  Age: 61 Year
  Sex: Male
  Weight: 95.2554 kg

DRUGS (4)
  1. ACTOS [Suspect]
     Indication: DIABETES MELLITUS
     Dosage: 45 MG, 1 IN D, PER ORAL
     Route: 048
     Dates: start: 20070101
  2. GLIPIZIDE/METFORMIN            (METFORMIN HYDROCHLORIDE GLIPIZIDE) [Concomitant]
  3. JANUVIA (ALL OTHER THERAPEUTIC PRODUCTS) [Concomitant]
  4. SIMVASTATIN [Concomitant]

REACTIONS (1)
  - NEPHROLITHIASIS [None]
